FAERS Safety Report 6428917-7 (Version None)
Quarter: 2009Q4

REPORT INFORMATION
  Report Type: 
  Country: None (occurrence: None)
  Receive Date: 20091104
  Receipt Date: 20091104
  Transmission Date: 20100525
  Serious: Yes (Other)
  Sender: FDA-Public Use
  Company Number: None

PATIENT
  Age: 65 Year
  Sex: Female
  Weight: 49.8957 kg

DRUGS (1)
  1. TRAZODONE HCL [Suspect]
     Dosage: 25 MG ONCE OPHTHALMIC
     Route: 047

REACTIONS (2)
  - PERIPHERAL PARALYSIS [None]
  - SEROTONIN SYNDROME [None]
